FAERS Safety Report 5395775-1 (Version None)
Quarter: 2007Q3

REPORT INFORMATION
  Report Type: 
  Country: None (occurrence: None)
  Receive Date: 20070724
  Receipt Date: 20070712
  Transmission Date: 20080115
  Serious: Yes (Death, Hospitalization, Other)
  Sender: FDA-Public Use
  Company Number: US-PFIZER INC-2006113900

PATIENT
  Sex: Male
  Weight: 99.8 kg

DRUGS (6)
  1. CELEBREX [Suspect]
     Indication: PAIN
     Dates: start: 20030101, end: 20031201
  2. VIOXX [Suspect]
     Indication: ARTHRITIS
     Dates: start: 20010523, end: 20031020
  3. ACCUPRIL [Concomitant]
     Dates: start: 20001201, end: 20031201
  4. FUROSEMIDE [Concomitant]
     Dates: start: 20001207, end: 20031201
  5. LIPITOR [Concomitant]
     Dates: start: 19991223, end: 20031201
  6. NAPROXEN [Concomitant]
     Dates: start: 20000310, end: 20031124

REACTIONS (2)
  - CARDIO-RESPIRATORY ARREST [None]
  - MYOCARDIAL INFARCTION [None]
